FAERS Safety Report 19131668 (Version 2)
Quarter: 2021Q2

REPORT INFORMATION
  Report Type: Report from Study
  Country: US (occurrence: US)
  Receive Date: 20210413
  Receipt Date: 20210507
  Transmission Date: 20210717
  Serious: Yes (Hospitalization, Other)
  Sender: FDA-Public Use
  Company Number: US-JNJFOC-20210410253

PATIENT
  Age: 63 Year
  Sex: Female
  Weight: 68.2 kg

DRUGS (3)
  1. SELEXIPAG [Suspect]
     Active Substance: SELEXIPAG
     Route: 048
  2. ELIQUIS [Concomitant]
     Active Substance: APIXABAN
  3. SELEXIPAG [Suspect]
     Active Substance: SELEXIPAG
     Indication: PULMONARY ARTERIAL HYPERTENSION
     Route: 048

REACTIONS (6)
  - Staphylococcal infection [Unknown]
  - Sepsis [Unknown]
  - Pain [Unknown]
  - Dyspnoea [Unknown]
  - Pruritus [Unknown]
  - Pneumonia [Unknown]

NARRATIVE: CASE EVENT DATE: 20210401
